FAERS Safety Report 22532773 (Version 1)
Quarter: 2023Q2

REPORT INFORMATION
  Report Type: Spontaneous
  Country: AU (occurrence: AU)
  Receive Date: 20230607
  Receipt Date: 20230607
  Transmission Date: 20230721
  Serious: Yes (Other)
  Sender: FDA-Public Use
  Company Number: AU-002147023-PHHY2019AU063453

PATIENT
  Sex: Female

DRUGS (4)
  1. URSODIOL [Suspect]
     Active Substance: URSODIOL
     Indication: Foetal exposure during pregnancy
     Dosage: UNK (MATRENAL DOSE 500 MG THREE TIMES DAILY )
     Route: 064
  2. BETAMETHASONE [Suspect]
     Active Substance: BETAMETHASONE
     Indication: Foetal exposure during pregnancy
     Route: 064
  3. RIFAMPIN [Suspect]
     Active Substance: RIFAMPIN
     Indication: Foetal exposure during pregnancy
     Dosage: UNK (MATERNAL DOSE 300 MG DAILY)
     Route: 064
  4. DEXAMETHASONE [Suspect]
     Active Substance: DEXAMETHASONE
     Indication: Foetal exposure during pregnancy
     Dosage: UNK (MATERNAL DOSE 4 MG TDS )
     Route: 064

REACTIONS (5)
  - Jaundice neonatal [Recovering/Resolving]
  - Premature baby [Unknown]
  - Low birth weight baby [Unknown]
  - Hypoglycaemia [Recovering/Resolving]
  - Foetal exposure during pregnancy [Unknown]
